APPROVED DRUG PRODUCT: K-LEASE
Active Ingredient: POTASSIUM CHLORIDE
Strength: 10MEQ
Dosage Form/Route: CAPSULE, EXTENDED RELEASE;ORAL
Application: A072427 | Product #001
Applicant: SAVAGE LABORATORIES INC DIV ALTANA INC
Approved: Mar 28, 1990 | RLD: No | RS: No | Type: DISCN